FAERS Safety Report 8436397-5 (Version None)
Quarter: 2012Q2

REPORT INFORMATION
  Report Type: 
  Country: None (occurrence: None)
  Receive Date: 20120614
  Receipt Date: 20110408
  Transmission Date: 20120825
  Serious: No
  Sender: FDA-Public Use
  Company Number: US-NOVEN-11US002230

PATIENT
  Sex: Male
  Weight: 72.562 kg

DRUGS (3)
  1. DAYTRANA [Suspect]
     Dosage: 20 MG, UNKNOWN
     Dates: start: 20101201
  2. ALBUTEROL [Concomitant]
     Indication: ASTHMA
     Dosage: 90 UG, UNK
     Route: 055
     Dates: start: 20030101
  3. DAYTRANA [Suspect]
     Indication: ATTENTION DEFICIT/HYPERACTIVITY DISORDER
     Dosage: 20 MG, UNK
     Route: 062
     Dates: start: 20090901

REACTIONS (4)
  - DRUG ADMINISTRATION ERROR [None]
  - DRUG INEFFECTIVE [None]
  - ABNORMAL BEHAVIOUR [None]
  - PRODUCT QUALITY ISSUE [None]
